FAERS Safety Report 8545028-5 (Version None)
Quarter: 2012Q3

REPORT INFORMATION
  Report Type: 
  Country: None (occurrence: None)
  Receive Date: 20120727
  Receipt Date: 20120719
  Transmission Date: 20120928
  Serious: Yes (Other)
  Sender: FDA-Public Use
  Company Number: BR-JNJFOC-20120713523

PATIENT
  Age: 60 Year
  Sex: Male

DRUGS (11)
  1. ALDACTONE [Concomitant]
     Indication: HYPERTENSION
     Route: 048
     Dates: start: 20120612
  2. XARELTO [Suspect]
     Indication: ATRIAL FIBRILLATION
     Route: 048
     Dates: start: 20120612, end: 20120718
  3. ATACAND [Concomitant]
     Indication: HYPERTENSION
     Route: 048
     Dates: start: 20120612
  4. LASIX [Concomitant]
     Indication: HYPERTENSION
     Route: 048
     Dates: start: 20120612
  5. XARELTO [Suspect]
     Indication: THROMBOSIS
     Route: 048
     Dates: start: 20120612, end: 20120718
  6. LASIX [Concomitant]
     Indication: CARDIAC FAILURE
     Route: 048
     Dates: start: 20120612
  7. ALDACTONE [Concomitant]
     Indication: CARDIAC FAILURE
     Route: 048
     Dates: start: 20120612
  8. METOPROLOL SUCCINATE [Concomitant]
     Indication: HYPERTENSION
     Route: 048
     Dates: start: 20120612
  9. METOPROLOL SUCCINATE [Concomitant]
     Indication: CARDIAC FAILURE
     Route: 048
     Dates: start: 20120612
  10. ATACAND [Concomitant]
     Indication: CARDIAC FAILURE
     Route: 048
     Dates: start: 20120612
  11. XARELTO [Suspect]
     Indication: CEREBROVASCULAR ACCIDENT PROPHYLAXIS
     Route: 048
     Dates: start: 20120612, end: 20120718

REACTIONS (1)
  - THROMBOSIS [None]
